FAERS Safety Report 9525142 (Version 1)
Quarter: 2013Q3

REPORT INFORMATION
  Report Type: Spontaneous
  Country: US (occurrence: US)
  Receive Date: 20130916
  Receipt Date: 20130916
  Transmission Date: 20140515
  Serious: Yes (Other)
  Sender: FDA-Public Use
  Company Number: US-ELI_LILLY_AND_COMPANY-US201309001583

PATIENT
  Age: 42 Year
  Sex: Male

DRUGS (1)
  1. ZYPREXA [Suspect]
     Indication: SCHIZOAFFECTIVE DISORDER
     Dosage: 60 MG, QD
     Dates: start: 1996

REACTIONS (4)
  - Liver injury [Unknown]
  - Weight increased [Unknown]
  - Type 2 diabetes mellitus [Unknown]
  - Prescribed overdose [Unknown]
